FAERS Safety Report 14795570 (Version 4)
Quarter: 2018Q3

REPORT INFORMATION
  Report Type: Report from Study
  Country: None (occurrence: US)
  Receive Date: 20180423
  Receipt Date: 20180914
  Transmission Date: 20181010
  Serious: Yes (Hospitalization, Other)
  Sender: FDA-Public Use
  Company Number: US-ABBVIE-18K-163-2327845-00

PATIENT
  Age: 60 Year
  Sex: Male
  Weight: 74.91 kg

DRUGS (2)
  1. HUMIRA [Suspect]
     Active Substance: ADALIMUMAB
     Indication: CROHN^S DISEASE
     Route: 058
     Dates: start: 2008
  2. VITAMIN C [Concomitant]
     Active Substance: ASCORBIC ACID
     Indication: PRODUCT USED FOR UNKNOWN INDICATION

REACTIONS (15)
  - Colonoscopy abnormal [Not Recovered/Not Resolved]
  - Mitral valve prolapse [Unknown]
  - Arterial occlusive disease [Recovered/Resolved]
  - Post procedural complication [Unknown]
  - Food intolerance [Recovering/Resolving]
  - Procedural pain [Recovered/Resolved]
  - Crohn^s disease [Recovering/Resolving]
  - Gastric disorder [Recovering/Resolving]
  - Therapeutic response shortened [Recovering/Resolving]
  - Road traffic accident [Unknown]
  - Myocardial infarction [Recovered/Resolved]
  - Weight fluctuation [Recovering/Resolving]
  - Ejection fraction decreased [Recovered/Resolved]
  - Hypophagia [Unknown]
  - Anger [Unknown]

NARRATIVE: CASE EVENT DATE: 201610
